FAERS Safety Report 20742209 (Version 10)
Quarter: 2022Q3

REPORT INFORMATION
  Report Type: Report from Study
  Country: GB (occurrence: GB)
  Receive Date: 20220423
  Receipt Date: 20220923
  Transmission Date: 20221026
  Serious: Yes (Hospitalization, Other)
  Sender: FDA-Public Use
  Company Number: GB-JNJFOC-20220406230

PATIENT
  Age: 20 Year
  Sex: Male
  Weight: 72.1 kg

DRUGS (25)
  1. DOXORUBICIN HYDROCHLORIDE [Suspect]
     Active Substance: DOXORUBICIN HYDROCHLORIDE
     Indication: Neoplasm
     Route: 065
     Dates: start: 20200430, end: 20200818
  2. CETIRIZINE HYDROCHLORIDE [Suspect]
     Active Substance: CETIRIZINE HYDROCHLORIDE
     Indication: Product used for unknown indication
     Route: 065
  3. TOPOTECAN HYDROCHLORIDE [Suspect]
     Active Substance: TOPOTECAN HYDROCHLORIDE
     Indication: Refractory cancer
     Dosage: (MAXIMUM 5 DAYS EVERY 21 DAYS)
     Route: 042
     Dates: start: 20220221
  4. TOPOTECAN HYDROCHLORIDE [Suspect]
     Active Substance: TOPOTECAN HYDROCHLORIDE
     Indication: Recurrent cancer
  5. CYCLOPHOSPHAMIDE [Suspect]
     Active Substance: CYCLOPHOSPHAMIDE
     Indication: Refractory cancer
     Dosage: (MAXIMUM 5 DAYS EVERY 21 DAYS)
     Route: 042
     Dates: start: 20220221
  6. CYCLOPHOSPHAMIDE [Suspect]
     Active Substance: CYCLOPHOSPHAMIDE
     Indication: Recurrent cancer
  7. IFOSFAMIDE [Suspect]
     Active Substance: IFOSFAMIDE
     Indication: Neoplasm
     Route: 065
     Dates: start: 20170519, end: 20171118
  8. IFOSFAMIDE [Suspect]
     Active Substance: IFOSFAMIDE
     Indication: Product used for unknown indication
  9. MESNA [Suspect]
     Active Substance: MESNA
     Indication: Neoplasm
     Route: 065
     Dates: start: 20170519, end: 20171118
  10. MESNA [Suspect]
     Active Substance: MESNA
     Route: 065
     Dates: start: 20170515, end: 20171118
  11. DOCUSATE SODIUM [Suspect]
     Active Substance: DOCUSATE SODIUM
     Indication: Product used for unknown indication
     Route: 065
     Dates: start: 20220301
  12. DOCUSATE SODIUM [Suspect]
     Active Substance: DOCUSATE SODIUM
     Route: 065
     Dates: start: 20220308
  13. INSTILLAGEL [Suspect]
     Active Substance: CHLORHEXIDINE GLUCONATE\LIDOCAINE HYDROCHLORIDE
     Indication: Product used for unknown indication
     Route: 065
  14. ORAMORPH SR SUSTAINED RELEASE [Suspect]
     Active Substance: MORPHINE SULFATE
     Indication: Product used for unknown indication
     Route: 065
  15. VENETOCLAX [Suspect]
     Active Substance: VENETOCLAX
     Indication: Refractory cancer
     Route: 048
     Dates: start: 20220218
  16. VENETOCLAX [Suspect]
     Active Substance: VENETOCLAX
     Indication: Recurrent cancer
  17. HYDROCORTISONE ACETATE\LIDOCAINE HYDROCHLORIDE [Suspect]
     Active Substance: HYDROCORTISONE ACETATE\LIDOCAINE HYDROCHLORIDE
     Indication: Adverse event
     Route: 065
  18. CETIRIZINE HYDROCHLORIDE [Suspect]
     Active Substance: CETIRIZINE HYDROCHLORIDE
     Indication: Product used for unknown indication
     Dosage: ZIRTEK ALLERGY
     Route: 048
     Dates: start: 20220301
  19. COTRIMOXAZOLE [Concomitant]
     Active Substance: SULFAMETHOXAZOLE\TRIMETHOPRIM
     Indication: Pneumocystis jirovecii pneumonia
     Dosage: (MONDAY, WEDNESDAY AND FRIDAY, 2 IN 1DAY)
     Route: 048
     Dates: start: 20220218
  20. COTRIMOXAZOLE [Concomitant]
     Active Substance: SULFAMETHOXAZOLE\TRIMETHOPRIM
     Indication: Prophylaxis
  21. LEVOTHYROXINE [Concomitant]
     Active Substance: LEVOTHYROXINE
     Indication: Hypothyroidism
     Route: 048
     Dates: start: 20200707
  22. LIPEGFILGRASTIM [Concomitant]
     Active Substance: LIPEGFILGRASTIM
     Indication: Prophylaxis
     Route: 058
     Dates: start: 20220227, end: 20220227
  23. ONDANSETRON [Concomitant]
     Active Substance: ONDANSETRON
     Indication: Prophylaxis of nausea and vomiting
     Dosage: (8 MG, 3 IN ONE DAY) (24 MG,3 IN 1 D)
     Route: 065
     Dates: start: 20220218
  24. ACETAMINOPHEN [Concomitant]
     Active Substance: ACETAMINOPHEN
     Indication: Adverse event
     Route: 065
     Dates: start: 20220308
  25. PIPERACILLIN SODIUM\TAZOBACTAM SODIUM [Concomitant]
     Active Substance: PIPERACILLIN SODIUM\TAZOBACTAM SODIUM
     Indication: Adverse event
     Route: 065
     Dates: start: 20220302

REACTIONS (13)
  - Febrile neutropenia [Recovered/Resolved]
  - Diarrhoea [Recovering/Resolving]
  - Proctalgia [Recovered/Resolved]
  - Back pain [Recovered/Resolved]
  - Accident [Unknown]
  - Malaise [Unknown]
  - Vomiting [Unknown]
  - Haemorrhoids [Unknown]
  - Body temperature increased [Unknown]
  - Pain [Unknown]
  - SARS-CoV-2 test negative [Unknown]
  - Crohn^s disease [Unknown]
  - Anal inflammation [Unknown]

NARRATIVE: CASE EVENT DATE: 20220301
